FAERS Safety Report 15077572 (Version 2)
Quarter: 2018Q3

REPORT INFORMATION
  Report Type: Report from Study
  Country: US (occurrence: US)
  Receive Date: 20180627
  Receipt Date: 20180829
  Transmission Date: 20181010
  Serious: No
  Sender: FDA-Public Use
  Company Number: US-ALEXION PHARMACEUTICALS INC.-A201808045

PATIENT
  Sex: Male

DRUGS (1)
  1. SOLIRIS [Suspect]
     Active Substance: ECULIZUMAB
     Indication: PRODUCT USED FOR UNKNOWN INDICATION
     Dosage: UNK
     Route: 065

REACTIONS (9)
  - Confusional state [Unknown]
  - Muscular weakness [Unknown]
  - Asthenia [Unknown]
  - Paraesthesia [Unknown]
  - Adverse reaction [Unknown]
  - Condition aggravated [Unknown]
  - Hypoaesthesia [Unknown]
  - Drug ineffective [Unknown]
  - Fatigue [Unknown]
